FAERS Safety Report 4928688-7 (Version None)
Quarter: 2006Q1

REPORT INFORMATION
  Report Type: 
  Country: None (occurrence: None)
  Receive Date: 20060301
  Receipt Date: 20060214
  Transmission Date: 20060701
  Serious: Yes (Hospitalization, Other)
  Sender: FDA-Public Use
  Company Number: FRWYE392814FEB06

PATIENT
  Age: 65 Year
  Sex: Female
  Weight: 50 kg

DRUGS (7)
  1. ENBREL [Suspect]
     Indication: RHEUMATOID ARTHRITIS
     Route: 058
     Dates: start: 20040224, end: 20050907
  2. ARAVA [Suspect]
     Dosage: 20 MG TOTAL DAILY
     Route: 048
     Dates: start: 20020719, end: 20041122
  3. ARAVA [Suspect]
     Dosage: 20 MG EVERY OTHER DAY
     Dates: start: 20050301, end: 20050412
  4. ACTONEL [Suspect]
     Route: 048
     Dates: start: 20010601, end: 20030715
  5. ACTONEL [Suspect]
     Route: 048
     Dates: start: 20030716, end: 20051212
  6. CORTANCYL [Concomitant]
     Dosage: UNKNOWN
     Route: 048
     Dates: start: 19850701
  7. SULFASALAZINE [Concomitant]
     Dosage: 4 TABLETS TOTAL DAILY
     Route: 048
     Dates: start: 19990301

REACTIONS (3)
  - ALOPECIA [None]
  - SCLERITIS [None]
  - VISUAL ACUITY REDUCED [None]
